FAERS Safety Report 10458371 (Version 1)
Quarter: 2014Q3

REPORT INFORMATION
  Report Type: Report from Study
  Country: FR (occurrence: FR)
  Receive Date: 20140917
  Receipt Date: 20140917
  Transmission Date: 20150326
  Serious: Yes (Other)
  Sender: FDA-Public Use
  Company Number: FR-BRISTOL-MYERS SQUIBB COMPANY-21400908

PATIENT
  Age: 69 Year
  Sex: Female
  Weight: 61 kg

DRUGS (19)
  1. APIDRA [Concomitant]
     Active Substance: INSULIN GLULISINE
  2. LANTUS [Concomitant]
     Active Substance: INSULIN GLARGINE
  3. METFORMINE [Concomitant]
     Active Substance: METFORMIN HYDROCHLORIDE
  4. CRESTOR [Concomitant]
     Active Substance: ROSUVASTATIN CALCIUM
  5. UVEDOSE [Concomitant]
     Active Substance: CHOLECALCIFEROL
  6. LYSODREN [Suspect]
     Active Substance: MITOTANE
     Indication: ADRENOCORTICAL CARCINOMA
     Dosage: 15JA-4MA,24JN-8NO13:6DF?5MA-23JN13:5D?5JA-LLFE14:4D?12FE-8AP14:17D?9AP-30JL14:3D?31JL-UK:.5714D
     Route: 065
     Dates: start: 201212
  7. LEVOTHYROX [Concomitant]
     Active Substance: LEVOTHYROXINE
  8. HYDROCORTISONE. [Concomitant]
     Active Substance: HYDROCORTISONE
  9. SEROPLEX [Concomitant]
     Active Substance: ESCITALOPRAM OXALATE
  10. RAMIPRIL. [Concomitant]
     Active Substance: RAMIPRIL
  11. DAFALGAN [Concomitant]
     Active Substance: ACETAMINOPHEN
  12. BISOPROLOL [Concomitant]
     Active Substance: BISOPROLOL
  13. FLECTOR [Concomitant]
     Active Substance: DICLOFENAC EPOLAMINE
  14. KARDEGIC [Concomitant]
     Active Substance: ASPIRIN LYSINE
  15. ZOPHREN [Concomitant]
     Active Substance: ONDANSETRON
  16. EZETROL [Concomitant]
     Active Substance: EZETIMIBE
  17. LYSANXIA [Concomitant]
     Active Substance: PRAZEPAM
  18. IMODIUM [Concomitant]
     Active Substance: LOPERAMIDE HYDROCHLORIDE
     Indication: DIARRHOEA
  19. ESOMEPRAZOLE [Concomitant]
     Active Substance: ESOMEPRAZOLE

REACTIONS (4)
  - Intention tremor [Unknown]
  - Balance disorder [Unknown]
  - Dizziness [Unknown]
  - Dysarthria [Unknown]

NARRATIVE: CASE EVENT DATE: 201308
